FAERS Safety Report 7997766-0 (Version None)
Quarter: 2011Q4

REPORT INFORMATION
  Report Type: 
  Country: None (occurrence: None)
  Receive Date: 20111221
  Receipt Date: 20111216
  Transmission Date: 20120403
  Serious: Yes (Other)
  Sender: FDA-Public Use
  Company Number: US-BRISTOL-MYERS SQUIBB COMPANY-16299034

PATIENT
  Age: 56 Year
  Sex: Female

DRUGS (1)
  1. ORENCIA [Suspect]
     Indication: RHEUMATOID ARTHRITIS
     Dosage: LAST INF:MAY2011,13DEC2011 INTP TILL AUG2011
     Route: 042
     Dates: start: 20100801

REACTIONS (1)
  - FOOT OPERATION [None]
